FAERS Safety Report 4538583-3 (Version None)
Quarter: 2004Q4

REPORT INFORMATION
  Report Type: 
  Country: None (occurrence: None)
  Receive Date: 20041222
  Receipt Date: 20041210
  Transmission Date: 20050328
  Serious: Yes (Congenital Anomaly)
  Sender: FDA-Public Use
  Company Number: A06200400307

PATIENT
  Sex: Female

DRUGS (2)
  1. XATRAL - (ALFUZOSIN) - TABLET PR - 10 MG [Suspect]
     Indication: HYPOTONIC URINARY BLADDER
     Dosage: 10 MG OD TRANSPLACENTAL
     Route: 064
  2. LENTOGEST (17 ALPHA-HYDROXYPROGESTERONE CAPROATE) [Concomitant]

REACTIONS (17)
  - ABORTION INDUCED [None]
  - ABORTION SPONTANEOUS [None]
  - ANOXIA [None]
  - BONE DEVELOPMENT ABNORMAL [None]
  - BRAIN OEDEMA [None]
  - CONGENITAL FOOT MALFORMATION [None]
  - DRUG EXPOSURE DURING PREGNANCY [None]
  - FIBULA AGENESIS [None]
  - FOETAL DISORDER [None]
  - HAEMATOMA [None]
  - LIMB HYPOPLASIA CONGENITAL [None]
  - LIMB MALFORMATION [None]
  - LIMB REDUCTION DEFECT [None]
  - PHALANGEAL AGENESIS [None]
  - PLACENTAL DISORDER [None]
  - PREGNANCY [None]
  - THYMUS HYPOPLASIA [None]
